FAERS Safety Report 13613060 (Version 3)
Quarter: 2017Q3

REPORT INFORMATION
  Report Type: Spontaneous
  Country: GB (occurrence: GB)
  Receive Date: 20170605
  Receipt Date: 20170718
  Transmission Date: 20171127
  Serious: Yes (Other)
  Sender: FDA-Public Use
  Company Number: GB-SA-2017SA097128

PATIENT
  Age: 64 Year
  Sex: Male

DRUGS (9)
  1. GTN [Concomitant]
     Active Substance: NITROGLYCERIN
     Dosage: SPRAY
  2. RAMIPRIL. [Concomitant]
     Active Substance: RAMIPRIL
  3. ALIROCUMAB PREFILLED PEN [Concomitant]
     Active Substance: ALIROCUMAB
     Dates: start: 20170302
  4. CLOPIDOGREL [Concomitant]
     Active Substance: CLOPIDOGREL BISULFATE
  5. PRALUENT [Suspect]
     Active Substance: ALIROCUMAB
     Route: 065
     Dates: start: 20170302
  6. ATORVASTATIN [Concomitant]
     Active Substance: ATORVASTATIN
     Dosage: FREQUENCY: NOCTE
  7. EZETIMIBE. [Concomitant]
     Active Substance: EZETIMIBE
  8. BISOPROLOL [Concomitant]
     Active Substance: BISOPROLOL
  9. RANOLAZINE. [Concomitant]
     Active Substance: RANOLAZINE

REACTIONS (6)
  - Dyspnoea [Unknown]
  - Palpitations [Unknown]
  - Chest pain [Unknown]
  - Dizziness [Unknown]
  - Hyperhidrosis [Unknown]
  - Angina pectoris [Unknown]

NARRATIVE: CASE EVENT DATE: 2017
